FAERS Safety Report 17796326 (Version 3)
Quarter: 2020Q2

REPORT INFORMATION
  Report Type: Spontaneous
  Country: US (occurrence: US)
  Receive Date: 20200517
  Receipt Date: 20200603
  Transmission Date: 20200714
  Serious: Yes (Hospitalization, Other)
  Sender: FDA-Public Use
  Company Number: US-ROCHE-2596398

PATIENT
  Age: 63 Year
  Sex: Female

DRUGS (4)
  1. NITROSTAT [Concomitant]
     Active Substance: NITROGLYCERIN
  2. RITUXAN [Suspect]
     Active Substance: RITUXIMAB
     Indication: RHEUMATOID ARTHRITIS
     Dosage: ONGOING :YES PER COURSE OF TREATMENT. HAS HAD TWO COURSES
     Route: 042
  3. NIFEDIPINE. [Concomitant]
     Active Substance: NIFEDIPINE
  4. RITUXAN [Suspect]
     Active Substance: RITUXIMAB
     Indication: OPTIC NEURITIS
     Route: 042
     Dates: start: 20200429

REACTIONS (19)
  - Gait disturbance [Unknown]
  - Feeling abnormal [Unknown]
  - Vomiting [Recovered/Resolved]
  - Rash [Unknown]
  - Muscular weakness [Unknown]
  - Seizure [Recovered/Resolved]
  - Finger amputation [Unknown]
  - Joint dislocation [Not Recovered/Not Resolved]
  - Focal dyscognitive seizures [Recovered/Resolved]
  - Facial bones fracture [Not Recovered/Not Resolved]
  - Intraductal papillary mucinous neoplasm [Not Recovered/Not Resolved]
  - Throat irritation [Unknown]
  - Hypotension [Not Recovered/Not Resolved]
  - Blood pressure measurement [Unknown]
  - Cytokine release syndrome [Unknown]
  - Tachycardia [Unknown]
  - Dizziness [Recovered/Resolved]
  - Fall [Recovered/Resolved]
  - Nausea [Not Recovered/Not Resolved]

NARRATIVE: CASE EVENT DATE: 20200429
